FAERS Safety Report 8233396-3 (Version None)
Quarter: 2012Q1

REPORT INFORMATION
  Report Type: 
  Country: None (occurrence: None)
  Receive Date: 20120323
  Receipt Date: 20120323
  Transmission Date: 20120608
  Serious: No
  Sender: FDA-Public Use
  Company Number: None

PATIENT

DRUGS (1)
  1. INSULIN [Suspect]
     Dosage: INJECTABLE
     Route: 042

REACTIONS (10)
  - UNRESPONSIVE TO STIMULI [None]
  - BLOOD GLUCOSE DECREASED [None]
  - MEDICATION ERROR [None]
  - WRONG DRUG ADMINISTERED [None]
  - HYPOTENSION [None]
  - PAIN [None]
  - APHASIA [None]
  - BRAIN INJURY [None]
  - DEHYDRATION [None]
  - DIABETIC COMA [None]
